FAERS Safety Report 5726355-3 (Version None)
Quarter: 2008Q2

REPORT INFORMATION
  Report Type: 
  Country: None (occurrence: None)
  Receive Date: 20080502
  Receipt Date: 20080430
  Transmission Date: 20081010
  Serious: Yes (Other)
  Sender: FDA-Public Use
  Company Number: GB-WYE-H02196108

PATIENT
  Sex: Female
  Weight: 114 kg

DRUGS (12)
  1. TYGACIL [Suspect]
     Indication: DIABETIC FOOT INFECTION
     Dosage: 150 MG ONCE DAILY
     Route: 042
     Dates: start: 20080116, end: 20080119
  2. LEVOTHYROXINE SODIUM [Concomitant]
     Indication: HYPOTHYROIDISM
  3. LABETALOL HCL [Concomitant]
     Indication: HYPERTENSION
     Dosage: 160 MG
     Route: 048
  4. IMDUR [Concomitant]
     Route: 048
  5. PROCHLORPERAZINE [Concomitant]
     Indication: NAUSEA
     Dosage: 5 MG AS NEEDED
  6. IRBESARTAN [Concomitant]
     Indication: HYPERTENSION
     Route: 048
  7. SENNA [Concomitant]
     Indication: CONSTIPATION
     Dosage: 15 MG
     Route: 048
  8. FUROSEMIDE [Concomitant]
     Indication: HYPERTENSION
     Route: 048
  9. LANSOPRAZOLE [Concomitant]
     Indication: PEPTIC ULCER
     Route: 048
  10. ACETYLSALICYLIC ACID SRT [Concomitant]
     Route: 048
  11. ROSUVASTATIN [Concomitant]
     Indication: DYSLIPIDAEMIA
     Dosage: 20 MG
     Route: 048
  12. AMLODIPINE [Concomitant]
     Indication: HYPERTENSION
     Dosage: 5 MG ONCE DAILY
     Route: 048

REACTIONS (1)
  - CUTANEOUS VASCULITIS [None]
